FAERS Safety Report 5690077-8 (Version None)
Quarter: 2008Q1

REPORT INFORMATION
  Report Type: 
  Country: None (occurrence: None)
  Receive Date: 20080331
  Receipt Date: 20080331
  Transmission Date: 20080703
  Serious: Yes (Other)
  Sender: FDA-Public Use
  Company Number: None

PATIENT
  Age: 14 Year
  Sex: Male
  Weight: 55.3388 kg

DRUGS (1)
  1. SINGULAIR [Suspect]
     Dosage: ONE DAILY PO
     Route: 048

REACTIONS (2)
  - FEELING ABNORMAL [None]
  - MOOD ALTERED [None]
